FAERS Safety Report 22118382 (Version 1)
Quarter: 2023Q1

REPORT INFORMATION
  Report Type: Spontaneous
  Country: CN (occurrence: None)
  Receive Date: 20230321
  Receipt Date: 20230321
  Transmission Date: 20230417
  Serious: Yes (Other)
  Sender: FDA-Public Use
  Company Number: CN-ROCHE-3308612

PATIENT
  Age: 7 Year
  Sex: Female
  Weight: 26 kg

DRUGS (9)
  1. TAMIFLU [Suspect]
     Active Substance: OSELTAMIVIR PHOSPHATE
     Indication: Pyrexia
     Dosage: PER DAY, FOR 2 DAYS.
     Route: 048
  2. TAMIFLU [Suspect]
     Active Substance: OSELTAMIVIR PHOSPHATE
     Indication: Cough
  3. TAMIFLU [Suspect]
     Active Substance: OSELTAMIVIR PHOSPHATE
     Indication: Oropharyngeal pain
  4. IBUPROFEN [Concomitant]
     Active Substance: IBUPROFEN
     Indication: Pyrexia
     Route: 048
  5. IBUPROFEN [Concomitant]
     Active Substance: IBUPROFEN
     Indication: Cough
  6. IBUPROFEN [Concomitant]
     Active Substance: IBUPROFEN
     Indication: Oropharyngeal pain
  7. COMPOUND PHOLCODINE SYRUP [Concomitant]
     Indication: Pyrexia
     Route: 048
  8. COMPOUND PHOLCODINE SYRUP [Concomitant]
     Indication: Cough
  9. COMPOUND PHOLCODINE SYRUP [Concomitant]
     Indication: Oropharyngeal pain

REACTIONS (2)
  - Intentional self-injury [Recovered/Resolved]
  - Tremor [Recovered/Resolved]
